FAERS Safety Report 11177032 (Version 1)
Quarter: 2015Q2

REPORT INFORMATION
  Report Type: Spontaneous
  Country: US (occurrence: None)
  Receive Date: 20150515
  Receipt Date: 20150515
  Transmission Date: 20150821
  Serious: Yes (Hospitalization)
  Sender: FDA-Public Use
  Company Number: 2015006249

PATIENT

DRUGS (4)
  1. CEFTIN (CEFUROXIME AXETIL) [Concomitant]
  2. CIMZIA [Suspect]
     Active Substance: CERTOLIZUMAB PEGOL
     Indication: CROHN^S DISEASE
     Route: 058
     Dates: start: 20130623
  3. CIMZIA [Suspect]
     Active Substance: CERTOLIZUMAB PEGOL
     Indication: COLITIS
     Route: 058
     Dates: start: 20130623
  4. CIMZIA [Suspect]
     Active Substance: CERTOLIZUMAB PEGOL
     Indication: OFF LABEL USE
     Route: 058
     Dates: start: 20130623

REACTIONS (2)
  - Off label use [None]
  - Bone abscess [None]

NARRATIVE: CASE EVENT DATE: 20130623
